FAERS Safety Report 9308858 (Version 2)
Quarter: 2013Q3

REPORT INFORMATION
  Report Type: Spontaneous
  Country: US (occurrence: US)
  Receive Date: 20130524
  Receipt Date: 20130717
  Transmission Date: 20140515
  Serious: Yes (Other)
  Sender: FDA-Public Use
  Company Number: US-PERRIGO-13US005309

PATIENT
  Age: 54 Year
  Sex: Female
  Weight: 58.96 kg

DRUGS (2)
  1. DESOXIMETASONE RX 0.25% 2C5 [Suspect]
     Indication: PRURITUS
     Dosage: GENEROUS AMOUNT, ONCE
     Route: 061
     Dates: start: 20130420, end: 20130420
  2. DESOXIMETASONE RX 0.25% 2C5 [Suspect]
     Dosage: GENEROUS AMOUNT, ONCE
     Route: 061
     Dates: start: 20130420, end: 20130420

REACTIONS (9)
  - Psychotic disorder [Recovered/Resolved]
  - Verbal abuse [Recovered/Resolved]
  - Negative thoughts [Recovered/Resolved]
  - Insomnia [Recovered/Resolved]
  - Dyspepsia [Recovered/Resolved]
  - Wound secretion [Recovered/Resolved]
  - Rash pruritic [Not Recovered/Not Resolved]
  - Scab [Recovered/Resolved]
  - Intentional drug misuse [Unknown]
